FAERS Safety Report 5873244-X (Version None)
Quarter: 2008Q3

REPORT INFORMATION
  Report Type: 
  Country: None (occurrence: None)
  Receive Date: 20080908
  Receipt Date: 20080829
  Transmission Date: 20090109
  Serious: Yes (Other)
  Sender: FDA-Public Use
  Company Number: IE-AMGEN-UK305042

PATIENT
  Sex: Male

DRUGS (2)
  1. ARANESP [Suspect]
     Indication: RENAL FAILURE CHRONIC
     Dates: start: 20080813, end: 20080813
  2. WARFARIN SODIUM [Concomitant]

REACTIONS (1)
  - PLATELET COUNT INCREASED [None]
